FAERS Safety Report 19468707 (Version 2)
Quarter: 2021Q2

REPORT INFORMATION
  Report Type: Spontaneous
  Country: NL (occurrence: NL)
  Receive Date: 20210628
  Receipt Date: 20210629
  Transmission Date: 20210717
  Serious: Yes (Other)
  Sender: FDA-Public Use
  Company Number: NL-TEVA-2021-NL-1925361

PATIENT
  Age: 28 Year
  Sex: Male
  Weight: 78 kg

DRUGS (4)
  1. MAGNESIUM COMPLEX [Concomitant]
     Active Substance: MAGNESIUM CHLORIDE\MAGNESIUM GLUCONATE
     Dosage: 1 DOSAGE FORMS DAILY; 1X A DAY IN THE MORNINGTHERAPY START DATE :THERAPY END DATE :ASKU
  2. MELATONINE / BRAND NAME NOT SPECIFIED [Concomitant]
     Active Substance: MELATONIN
     Dosage: IN THE EVENING , THERAPY START DATE AND END DATE : ASKU
  3. PANTOPRAZOL TABLET MSR 40MG / BRAND NAME NOT SPECIFIED [Concomitant]
     Active Substance: PANTOPRAZOLE
     Dosage: 1 DOSAGE FORMS DAILY;  IN THE MORNING , THERAPY START DATE AND END DATE : ASKU
  4. COLCHICINE TABLET 0,5MG / BRAND NAME NOT SPECIFIED [Suspect]
     Active Substance: COLCHICINE
     Indication: PERICARDITIS
     Dosage: 2 DOSAGE FORMS DAILY; THERAPY END DATE : ASKU
     Dates: start: 20210417

REACTIONS (9)
  - Headache [Recovering/Resolving]
  - Malaise [Recovering/Resolving]
  - Pericarditis [Recovering/Resolving]
  - Condition aggravated [Recovering/Resolving]
  - Fatigue [Not Recovered/Not Resolved]
  - Chills [Recovered/Resolved]
  - Pyrexia [Recovered/Resolved]
  - Myalgia [Recovered/Resolved]
  - Nausea [Recovered/Resolved]

NARRATIVE: CASE EVENT DATE: 20210424
